FAERS Safety Report 9541961 (Version 3)
Quarter: 2013Q4

REPORT INFORMATION
  Report Type: Report from Study
  Country: BR (occurrence: BR)
  Receive Date: 20130923
  Receipt Date: 20131105
  Transmission Date: 20140711
  Serious: Yes (Other)
  Sender: FDA-Public Use
  Company Number: PHHY2013BR105194

PATIENT
  Sex: Female
  Weight: 68 kg

DRUGS (2)
  1. EXELON PATCH [Suspect]
     Indication: AMNESIA
     Dosage: 1 DF, DAILY
     Route: 062
  2. EXELON PATCH [Suspect]
     Dosage: STRONGER DOSE OF EXELON PATCH
     Route: 062

REACTIONS (4)
  - Abasia [Recovering/Resolving]
  - Malaise [Recovering/Resolving]
  - Vomiting [Recovering/Resolving]
  - Diarrhoea [Recovering/Resolving]
